FAERS Safety Report 7544058-X (Version None)
Quarter: 2011Q2

REPORT INFORMATION
  Report Type: 
  Country: None (occurrence: None)
  Receive Date: 20110613
  Receipt Date: 20051018
  Transmission Date: 20111010
  Serious: Yes (Other)
  Sender: FDA-Public Use
  Company Number: PHHO2005CA16618

PATIENT
  Sex: Male

DRUGS (6)
  1. CARDURA [Concomitant]
  2. MODURET [Concomitant]
  3. SANDOSTATIN LAR [Suspect]
     Indication: CARCINOID TUMOUR
     Dosage: 20 MG, ONCE A MONTH
     Dates: start: 20050505
  4. LIPITOR [Concomitant]
  5. PANTOPRAZOLE SODIUM [Concomitant]
  6. SINGULAIR [Concomitant]

REACTIONS (1)
  - WEIGHT DECREASED [None]
